FAERS Safety Report 4597673-X (Version None)
Quarter: 2005Q1

REPORT INFORMATION
  Report Type: 
  Country: None (occurrence: None)
  Receive Date: 20050303
  Receipt Date: 20050225
  Transmission Date: 20050727
  Serious: Yes (Life-Threatening, Hospitalization)
  Sender: FDA-Public Use
  Company Number: PT-JNJFOC-20050300009

PATIENT

DRUGS (1)
  1. REMINYL [Suspect]
     Route: 049

REACTIONS (1)
  - HAEMORRHAGIC STROKE [None]
